FAERS Safety Report 8418541-9 (Version None)
Quarter: 2012Q2

REPORT INFORMATION
  Report Type: 
  Country: None (occurrence: None)
  Receive Date: 20120607
  Receipt Date: 20120529
  Transmission Date: 20120825
  Serious: Yes (Other)
  Sender: FDA-Public Use
  Company Number: US-GENZYME-CART-1000083

PATIENT

DRUGS (1)
  1. CARTICEL [Suspect]
     Indication: CARTILAGE INJURY
     Route: 014

REACTIONS (2)
  - WOUND DEHISCENCE [None]
  - STAPHYLOCOCCAL INFECTION [None]
